FAERS Safety Report 21740684 (Version 1)
Quarter: 2022Q4

REPORT INFORMATION
  Report Type: Spontaneous
  Country: US (occurrence: None)
  Receive Date: 20221215
  Receipt Date: 20221215
  Transmission Date: 20230112
  Serious: Yes (Hospitalization)
  Sender: FDA-Public Use
  Company Number: None

PATIENT
  Age: 79 Year
  Sex: Male
  Weight: 83.91 kg

DRUGS (1)
  1. LISINOPRIL [Suspect]
     Active Substance: LISINOPRIL
     Indication: Hypertension
     Dates: start: 20220206, end: 20221206

REACTIONS (3)
  - Blood urea increased [None]
  - Blood creatinine increased [None]
  - Hyperkalaemia [None]

NARRATIVE: CASE EVENT DATE: 20221206
